FAERS Safety Report 5203113-X (Version None)
Quarter: 2006Q4

REPORT INFORMATION
  Report Type: 
  Country: None (occurrence: None)
  Receive Date: 20061016
  Receipt Date: 20051027
  Transmission Date: 20070319
  Serious: Yes (Other)
  Sender: FDA-Public Use
  Company Number: 2005148982

PATIENT
  Sex: Female

DRUGS (1)
  1. NEURONTIN [Suspect]
     Indication: NEUROPATHY
     Dosage: 600 MG

REACTIONS (7)
  - BREAST CANCER [None]
  - CARDIAC FAILURE [None]
  - FALL [None]
  - GAIT DISTURBANCE [None]
  - INJURY [None]
  - LUNG DISORDER [None]
  - TREMOR [None]
